FAERS Safety Report 8767014 (Version 1)
Quarter: 2012Q4

REPORT INFORMATION
  Report Type: 
  Country: US (occurrence: US)
  Receive Date: 20120904
  Receipt Date: 20120904
  Transmission Date: 20130627
  Serious: Yes (Hospitalization, Other)
  Sender: FDA-Public Use
  Company Number: US-PFIZER INC-2012213013

PATIENT
  Age: 45 Year
  Sex: Female
  Weight: 92.06 kg

DRUGS (16)
  1. LYRICA [Suspect]
     Indication: FIBROMYALGIA
     Dosage: 100 mg, 4x/day
     Route: 048
  2. SEREVENT DISKUS [Suspect]
     Indication: CHRONIC OBSTRUCTIVE PULMONARY DISEASE
     Dosage: UNK, 2x/day
  3. XOPENEX [Suspect]
     Indication: CHRONIC OBSTRUCTIVE PULMONARY DISEASE
     Dosage: UNK, as needed
  4. DIAZEPAM [Concomitant]
     Indication: PAIN
     Dosage: 10 mg, 3x/day
     Dates: start: 2003
  5. EPIPEN [Concomitant]
     Dosage: 0.3 mg, as needed
  6. FUROSEMIDE [Concomitant]
     Indication: DIURETIC THERAPY
     Dosage: 20 mg, 1x/day
     Dates: start: 2000
  7. FUROSEMIDE [Concomitant]
     Dosage: 40 mg, 1x/day
     Dates: start: 201208
  8. LORATADINE [Concomitant]
     Indication: HYPERSENSITIVITY
     Dosage: 10 mg, as needed
  9. SIMVASTATIN [Concomitant]
     Indication: BLOOD CHOLESTEROL INCREASED
     Dosage: 20 mg, daily
  10. METHOCARBAMOL [Concomitant]
     Indication: PAIN
     Dosage: 750 mg, 4x/day
  11. LEVETIRACETAM [Concomitant]
     Indication: CONVULSION
     Dosage: 500 mg, 2x/day
  12. LAMICTAL [Concomitant]
     Indication: CONVULSION
     Dosage: 200 mg, 2x/day
  13. DOXYCYCLINE [Concomitant]
     Indication: DERMAL CYST
     Dosage: 100 mg, 2x/day
  14. CLINDAMYCIN [Concomitant]
     Indication: DERMAL CYST
     Dosage: UNK, as needed
  15. PATANOL [Concomitant]
     Indication: HYPERSENSITIVITY
     Dosage: UNK, as needed
  16. ACULAR [Concomitant]
     Indication: HYPERSENSITIVITY
     Dosage: UNK, as needed

REACTIONS (6)
  - Drug dose omission [Recovered/Resolved]
  - Pulmonary oedema [Recovered/Resolved]
  - Loss of consciousness [Recovered/Resolved]
  - High density lipoprotein decreased [Not Recovered/Not Resolved]
  - Low density lipoprotein increased [Not Recovered/Not Resolved]
  - Drug ineffective [Unknown]
